FAERS Safety Report 5362818-0 (Version None)
Quarter: 2007Q2

REPORT INFORMATION
  Report Type: 
  Country: None (occurrence: None)
  Receive Date: 20070612
  Receipt Date: 20070529
  Transmission Date: 20071010
  Serious: Yes (Other)
  Sender: FDA-Public Use
  Company Number: 156868ISR

PATIENT
  Age: 72 Year
  Sex: Female

DRUGS (1)
  1. TRIMETHOPRIM [Suspect]
     Indication: CYSTITIS
     Dosage: 400 MG (200 MG, 2 IN 1 D)
     Route: 048
     Dates: start: 20070426, end: 20070430

REACTIONS (3)
  - GAIT DISTURBANCE [None]
  - POSTURE ABNORMAL [None]
  - TREMOR [None]
